FAERS Safety Report 6111787-4 (Version None)
Quarter: 2009Q1

REPORT INFORMATION
  Report Type: 
  Country: None (occurrence: None)
  Receive Date: 20090311
  Receipt Date: 20090304
  Transmission Date: 20090719
  Serious: Yes (Death)
  Sender: FDA-Public Use
  Company Number: CA-ABBOTT-09P-028-0560387-00

PATIENT
  Sex: Male
  Weight: 68.1 kg

DRUGS (5)
  1. LUPRON DEPOT [Suspect]
     Indication: PROSTATE CANCER
     Route: 050
     Dates: start: 20081118, end: 20090218
  2. LEVODOPA [Concomitant]
     Indication: DRUG USE FOR UNKNOWN INDICATION
  3. COMPAN [Concomitant]
     Indication: DRUG USE FOR UNKNOWN INDICATION
  4. SINEMET [Concomitant]
     Indication: DRUG USE FOR UNKNOWN INDICATION
  5. EXELON [Concomitant]
     Indication: DRUG USE FOR UNKNOWN INDICATION

REACTIONS (3)
  - ACIDOSIS [None]
  - MALAISE [None]
  - PNEUMONIA [None]
